FAERS Safety Report 8836912 (Version 1)
Quarter: 2012Q4

REPORT INFORMATION
  Report Type: Spontaneous
  Country: US (occurrence: None)
  Receive Date: 20121011
  Receipt Date: 20121011
  Transmission Date: 20130627
  Serious: No
  Sender: FDA-Public Use
  Company Number: None

PATIENT
  Age: 46 Year
  Sex: Female
  Weight: 125.5 kg

DRUGS (1)
  1. PAROXETINE [Suspect]
     Route: 048
     Dates: start: 20120508, end: 20120511

REACTIONS (2)
  - Anxiety [None]
  - Palpitations [None]
